FAERS Safety Report 7103401-6 (Version None)
Quarter: 2010Q4

REPORT INFORMATION
  Report Type: 
  Country: None (occurrence: None)
  Receive Date: 20101115
  Receipt Date: 20101104
  Transmission Date: 20110411
  Serious: Yes (Hospitalization, Other)
  Sender: FDA-Public Use
  Company Number: SA-BAYER-201045599GPV

PATIENT
  Age: 39 Year
  Sex: Female

DRUGS (2)
  1. CIPROFLOXACIN [Suspect]
     Indication: URINARY TRACT INFECTION
     Dosage: TOTAL DAILY DOSE: 1000 MG
     Route: 048
     Dates: start: 19980901, end: 19980101
  2. FOSINOPRIL SODIUM [Concomitant]
     Indication: HYPERTENSION

REACTIONS (11)
  - DEPERSONALISATION [None]
  - DEREALISATION [None]
  - DISORIENTATION [None]
  - ENCEPHALOPATHY [None]
  - HYPERREFLEXIA [None]
  - HYPOAESTHESIA [None]
  - MEMORY IMPAIRMENT [None]
  - MYOCLONUS [None]
  - PARAESTHESIA [None]
  - SOMNOLENCE [None]
  - TREMOR [None]
